FAERS Safety Report 6994124-2 (Version None)
Quarter: 2010Q3

REPORT INFORMATION
  Report Type: 
  Country: None (occurrence: None)
  Receive Date: 20100917
  Receipt Date: 20090907
  Transmission Date: 20110219
  Serious: Yes (Life-Threatening, Hospitalization)
  Sender: FDA-Public Use
  Company Number: US-ASTRAZENECA-2009SE11791

PATIENT
  Age: 30 Year
  Sex: Female

DRUGS (2)
  1. SEROQUEL [Suspect]
     Dosage: TITRATED FROM 25 MG AT BEDTIME TO 200 MG AT BEDTIME
     Route: 048
  2. GEODON [Suspect]
     Indication: SCHIZOPHRENIA
     Dosage: TITRATED FROM 20 MG TWICE DAILY TO 80 MG TWICE DAILY
     Route: 048

REACTIONS (2)
  - DIABETIC KETOACIDOSIS [None]
  - PANCREATITIS [None]
